FAERS Safety Report 4910604-5 (Version None)
Quarter: 2006Q1

REPORT INFORMATION
  Report Type: 
  Country: None (occurrence: None)
  Receive Date: 20060214
  Receipt Date: 20060116
  Transmission Date: 20060701
  Serious: Yes (Hospitalization)
  Sender: FDA-Public Use
  Company Number: US-AMGEN-US163554

PATIENT
  Sex: Male
  Weight: 172 kg

DRUGS (12)
  1. ARANESP [Suspect]
     Indication: DIALYSIS
     Route: 042
     Dates: start: 20041001
  2. IRON [Concomitant]
     Route: 042
     Dates: start: 20050901
  3. TOPROL-XL [Concomitant]
  4. RENAGEL [Concomitant]
  5. PLAVIX [Concomitant]
  6. LASIX [Concomitant]
  7. AVAPRO [Concomitant]
  8. FERRLECIT FOR INJECTION [Concomitant]
  9. CALCIUM ACETATE [Concomitant]
  10. NEPHRO-VITE [Concomitant]
  11. AVANDIA [Concomitant]
  12. LISINOPRIL [Concomitant]

REACTIONS (5)
  - BLOOD PARATHYROID HORMONE INCREASED [None]
  - CELLULITIS [None]
  - HYPERGAMMAGLOBULINAEMIA BENIGN MONOCLONAL [None]
  - PANCYTOPENIA [None]
  - THERAPEUTIC RESPONSE DECREASED [None]
